FAERS Safety Report 20179346 (Version 1)
Quarter: 2021Q4

REPORT INFORMATION
  Report Type: Spontaneous
  Country: CN (occurrence: CN)
  Receive Date: 20211214
  Receipt Date: 20211214
  Transmission Date: 20220303
  Serious: Yes (Other)
  Sender: FDA-Public Use
  Company Number: CN-ABBVIE-21K-035-4193892-00

PATIENT
  Age: 70 Year
  Sex: Female

DRUGS (2)
  1. VALPROATE SODIUM [Suspect]
     Active Substance: VALPROATE SODIUM
     Indication: Dystonia
     Route: 048
     Dates: start: 20210225, end: 20210302
  2. CODEINE PHOSPHATE;IBUPROFEN [Concomitant]
     Indication: Product used for unknown indication
     Route: 065
     Dates: start: 20210223, end: 20210303

REACTIONS (3)
  - Dysphagia [Recovering/Resolving]
  - Depressed level of consciousness [Recovering/Resolving]
  - Somnolence [Recovering/Resolving]

NARRATIVE: CASE EVENT DATE: 20210302
